FAERS Safety Report 9201400 (Version 1)
Quarter: 2013Q1

REPORT INFORMATION
  Report Type: Spontaneous
  Country: US (occurrence: None)
  Receive Date: 20130327
  Receipt Date: 20130327
  Transmission Date: 20140127
  Serious: Yes (Hospitalization, Other)
  Sender: FDA-Public Use
  Company Number: MERCK1212GBR011133

PATIENT
  Age: 57 Year
  Sex: Male

DRUGS (1)
  1. BCG LIVE [Suspect]

REACTIONS (2)
  - Neutropenia [None]
  - Liver function test abnormal [None]
